FAERS Safety Report 9421177 (Version 1)
Quarter: 2013Q3

REPORT INFORMATION
  Report Type: Spontaneous
  Country: CA (occurrence: None)
  Receive Date: 20130709
  Receipt Date: 20130709
  Transmission Date: 20140515
  Serious: Yes (Death)
  Sender: FDA-Public Use
  Company Number: 2013036822

PATIENT
  Age: 76 Year
  Sex: Male

DRUGS (2)
  1. IVIG [Suspect]
     Indication: ENCEPHALITIS
  2. CORTICOSTEROIDS (CORTICOSTEROIDS) [Concomitant]

REACTIONS (1)
  - Drug ineffective for unapproved indication [None]
